FAERS Safety Report 8242356-8 (Version None)
Quarter: 2012Q1

REPORT INFORMATION
  Report Type: 
  Country: None (occurrence: None)
  Receive Date: 20120329
  Receipt Date: 20120316
  Transmission Date: 20120608
  Serious: Yes (Death)
  Sender: FDA-Public Use
  Company Number: US-MEDIMMUNE-MEDI-0015145

PATIENT
  Sex: Male
  Weight: 2.384 kg

DRUGS (9)
  1. SYNAGIS [Suspect]
  2. POLY-VI-SOL [Concomitant]
     Dates: start: 20120203
  3. FUROSEMIDE [Concomitant]
     Indication: VENTRICULAR SEPTAL DEFECT
  4. SYNAGIS [Suspect]
     Route: 030
     Dates: start: 20120201, end: 20120306
  5. ENALAPRIL MALEATE [Concomitant]
     Indication: VENTRICULAR SEPTAL DEFECT
     Dates: start: 20120203
  6. URSODIOL [Concomitant]
     Indication: GASTROINTESTINAL DISORDER
     Dates: start: 20120203
  7. URSODIOL [Concomitant]
  8. ZANTAC [Concomitant]
     Dates: start: 20120203
  9. FUROSEMIDE [Concomitant]
     Indication: PULMONARY HYPERTENSION
     Dates: start: 20120203

REACTIONS (2)
  - SEPSIS [None]
  - NECROTISING COLITIS [None]
